FAERS Safety Report 5835107-5 (Version None)
Quarter: 2008Q3

REPORT INFORMATION
  Report Type: 
  Country: None (occurrence: None)
  Receive Date: 20080805
  Receipt Date: 20080805
  Transmission Date: 20090109
  Serious: Yes (Hospitalization)
  Sender: FDA-Public Use
  Company Number: None

PATIENT
  Sex: Male
  Weight: 127.0072 kg

DRUGS (21)
  1. ALTACE [Suspect]
     Indication: MYOCARDIAL INFARCTION
     Dosage: 2.5 MG ONCE A DAY PO
     Route: 048
     Dates: start: 20080117, end: 20080414
  2. COREG [Concomitant]
  3. ASPIRIN [Concomitant]
  4. SPIRIVA [Concomitant]
  5. PLAVIX [Concomitant]
  6. PULMICORT [Concomitant]
  7. ZETIA [Concomitant]
  8. LASIX [Concomitant]
  9. SINGULAIR [Concomitant]
  10. PROTONIX [Concomitant]
  11. ADVAIR DISKUS 100/50 [Concomitant]
  12. ALTACE [Concomitant]
  13. HYDROCHLOROTHIAZIDE [Concomitant]
  14. LIPITOR [Concomitant]
  15. POTASSIUM CHLORIDE [Concomitant]
  16. ROZEREM [Concomitant]
  17. CLONOPIN [Concomitant]
  18. ZOLOFT [Concomitant]
  19. XOPENEX [Concomitant]
  20. ASTELIN [Concomitant]
  21. INSULIN [Concomitant]

REACTIONS (6)
  - ATRIAL FIBRILLATION [None]
  - BLOOD CREATININE INCREASED [None]
  - ELECTROLYTE IMBALANCE [None]
  - GOUTY ARTHRITIS [None]
  - HYPOTENSION [None]
  - RENAL FAILURE ACUTE [None]
